FAERS Safety Report 5583110-5 (Version None)
Quarter: 2008Q1

REPORT INFORMATION
  Report Type: 
  Country: None (occurrence: None)
  Receive Date: 20080107
  Receipt Date: 20061127
  Transmission Date: 20080703
  Serious: No
  Sender: FDA-Public Use
  Company Number: A0628671A

PATIENT
  Sex: Female

DRUGS (1)
  1. TAGAMET [Suspect]
     Indication: DRUG USE FOR UNKNOWN INDICATION
     Route: 048

REACTIONS (3)
  - DRUG INEFFECTIVE [None]
  - RASH [None]
  - URTICARIA [None]
